FAERS Safety Report 8265264-5 (Version None)
Quarter: 2012Q2

REPORT INFORMATION
  Report Type: 
  Country: None (occurrence: None)
  Receive Date: 20120406
  Receipt Date: 20120326
  Transmission Date: 20120825
  Serious: Yes (Hospitalization)
  Sender: FDA-Public Use
  Company Number: SE-ROCHE-1046733

PATIENT
  Sex: Male

DRUGS (7)
  1. MABTHERA [Suspect]
     Indication: LYMPHOMA
     Dates: start: 20120101
  2. CYCLOPHOSPHAMIDE [Concomitant]
     Indication: LYMPHOMA
     Route: 042
     Dates: start: 20120103, end: 20120103
  3. PREDNISONE [Concomitant]
     Indication: LYMPHOMA
     Dates: start: 20120101
  4. METHOTREXATE [Concomitant]
     Indication: LYMPHOMA
     Route: 042
     Dates: start: 20120103, end: 20120103
  5. ZEFFIX [Concomitant]
     Indication: HEPATITIS B
     Route: 048
     Dates: start: 20111227, end: 20120302
  6. ONCOVIN [Concomitant]
     Indication: LYMPHOMA
     Route: 042
     Dates: start: 20120103, end: 20120312
  7. DAUNORUBICIN HCL [Concomitant]
     Indication: LYMPHOMA
     Route: 042
     Dates: start: 20120103, end: 20120103

REACTIONS (1)
  - PROGRESSIVE MULTIFOCAL LEUKOENCEPHALOPATHY [None]
